FAERS Safety Report 9592375 (Version 1)
Quarter: 2013Q4

REPORT INFORMATION
  Report Type: Spontaneous
  Country: US (occurrence: US)
  Receive Date: 20131004
  Receipt Date: 20131004
  Transmission Date: 20140711
  Serious: No
  Sender: FDA-Public Use
  Company Number: US-B.I. PHARMACEUTICALS,INC./RIDGEFIELD-2013-BI-30133BP

PATIENT
  Age: 77 Year
  Sex: Male
  Weight: 136 kg

DRUGS (7)
  1. COMBIVENT [Suspect]
     Indication: BRONCHITIS CHRONIC
     Dosage: STRENGTH: 20 MCG / 100 MCG;
     Route: 055
     Dates: start: 201308
  2. LISINOPRIL [Concomitant]
     Indication: HYPERTENSION
     Dosage: 5 MG
     Route: 048
  3. CELEXA [Concomitant]
     Dosage: 10 MG
     Route: 048
  4. COREG [Concomitant]
     Indication: HYPERTENSION
     Dosage: 6.25 MG
     Route: 048
  5. ALDACTONE [Concomitant]
     Indication: CARDIAC FAILURE CONGESTIVE
     Dosage: 25 MG
     Route: 048
  6. FUROSEMIDE [Concomitant]
     Indication: FLUID RETENTION
     Dosage: 80 MG
     Route: 048
  7. BUMEX [Concomitant]
     Indication: CARDIAC FAILURE CONGESTIVE
     Dosage: 2 MG
     Route: 048

REACTIONS (2)
  - Tinea cruris [Not Recovered/Not Resolved]
  - Rash [Not Recovered/Not Resolved]
